FAERS Safety Report 24364175 (Version 1)
Quarter: 2024Q3

REPORT INFORMATION
  Report Type: Report from Study
  Country: DE (occurrence: DE)
  Receive Date: 20240925
  Receipt Date: 20240925
  Transmission Date: 20241017
  Serious: Yes (Hospitalization)
  Sender: ABBVIE
  Company Number: DE-ABBVIE-5933728

PATIENT
  Age: 35 Year
  Sex: Male

DRUGS (1)
  1. SKYRIZI [Suspect]
     Active Substance: RISANKIZUMAB-RZAA
     Indication: Crohn^s disease
     Route: 058
     Dates: start: 202406

REACTIONS (3)
  - Surgery [Recovered/Resolved]
  - Speech disorder [Not Recovered/Not Resolved]
  - Intestinal operation [Recovered/Resolved]

NARRATIVE: CASE EVENT DATE: 20240916
